FAERS Safety Report 7394362-3 (Version None)
Quarter: 2011Q2

REPORT INFORMATION
  Report Type: 
  Country: None (occurrence: None)
  Receive Date: 20110405
  Receipt Date: 20110331
  Transmission Date: 20111010
  Serious: Yes (Other)
  Sender: FDA-Public Use
  Company Number: KR-ROCHE-764703

PATIENT
  Age: 75 Year
  Sex: Female

DRUGS (1)
  1. BONIVA [Suspect]
     Indication: OSTEOPOROSIS
     Dosage: 1 JAN 2011, 1 FEB 2011, AND 5 MAR 2011
     Route: 048
     Dates: start: 20110101

REACTIONS (5)
  - HAEMATURIA [None]
  - PAIN [None]
  - DECREASED APPETITE [None]
  - ABDOMINAL PAIN LOWER [None]
  - DRY MOUTH [None]
